FAERS Safety Report 9642388 (Version 1)
Quarter: 2013Q4

REPORT INFORMATION
  Report Type: Spontaneous
  Country: US (occurrence: US)
  Receive Date: 20131024
  Receipt Date: 20131024
  Transmission Date: 20140711
  Serious: No
  Sender: FDA-Public Use
  Company Number: US-BIOGENIDEC-2013BI100386

PATIENT
  Sex: Male

DRUGS (1)
  1. AVONEX [Suspect]
     Indication: MULTIPLE SCLEROSIS
     Route: 030
     Dates: start: 20060428, end: 20111001

REACTIONS (3)
  - Trigeminal neuralgia [Not Recovered/Not Resolved]
  - Influenza like illness [Recovered/Resolved]
  - Malaise [Unknown]
